FAERS Safety Report 9832151 (Version 3)
Quarter: 2014Q2

REPORT INFORMATION
  Report Type: Report from Study
  Country: FR (occurrence: FR)
  Receive Date: 20140121
  Receipt Date: 20140416
  Transmission Date: 20141212
  Serious: Yes (Death, Life-Threatening)
  Sender: FDA-Public Use
  Company Number: FR-CELGENEUS-056-C4047-14012420

PATIENT
  Age: 72 Year
  Sex: Male
  Weight: 56 kg

DRUGS (17)
  1. CC-4047 [Suspect]
     Indication: PLASMA CELL MYELOMA
     Dosage: 4 MILLIGRAM
     Route: 048
     Dates: start: 20131122, end: 20131219
  2. CC-4047 [Suspect]
     Dosage: 4 MILLIGRAM
     Route: 048
     Dates: start: 20131220, end: 20140112
  3. DEXAMETHASONE [Suspect]
     Indication: PLASMA CELL MYELOMA
     Dosage: 40 MILLIGRAM
     Route: 065
     Dates: start: 20131122, end: 20131219
  4. DEXAMETHASONE [Suspect]
     Dosage: 40 MILLIGRAM
     Route: 065
     Dates: start: 20131220, end: 20140112
  5. DEXAMETHASONE [Suspect]
     Dosage: 40 MILLIGRAM
     Route: 048
     Dates: start: 20081013, end: 20091210
  6. DEXAMETHASONE [Suspect]
     Dosage: 40 MILLIGRAM
     Route: 048
     Dates: start: 20121113, end: 20130516
  7. DEXAMETHASONE [Suspect]
     Dosage: 20 MILLIGRAM
     Route: 048
     Dates: start: 20130531, end: 20130923
  8. ASPEGIC [Concomitant]
     Indication: THROMBOSIS PROPHYLAXIS
     Dosage: 100 MILLIGRAM
     Route: 048
     Dates: start: 20131122
  9. LYRICA [Concomitant]
     Indication: NEUROPATHY PERIPHERAL
     Dosage: 75 MILLIGRAM
     Route: 048
     Dates: start: 20120509
  10. SKENAN [Concomitant]
     Indication: BONE PAIN
     Dosage: 120 MILLIGRAM
     Route: 048
     Dates: start: 20100716
  11. NEXIUM [Concomitant]
     Indication: PROPHYLAXIS
     Dosage: 40 MILLIGRAM
     Route: 048
     Dates: start: 20100604
  12. ZOMETA [Concomitant]
     Indication: HYPERCALCAEMIA
     Dosage: 4 MILLIGRAM
     Route: 041
     Dates: start: 20080916
  13. ZOMETA [Concomitant]
     Indication: PROPHYLAXIS
     Route: 065
  14. DAFALGAN [Concomitant]
     Indication: BONE PAIN
     Dosage: 3000 MILLIGRAM
     Route: 048
     Dates: start: 20080925
  15. ACEBUTOLOL [Concomitant]
     Indication: HYPERTENSION
     Dosage: 100 MILLIGRAM
     Route: 048
     Dates: start: 19971209
  16. FLECAINE [Concomitant]
     Indication: ATRIAL FIBRILLATION
     Dosage: 100 MILLIGRAM
     Route: 048
     Dates: start: 20100126
  17. EPREX [Concomitant]
     Indication: ANAEMIA PROPHYLAXIS
     Dosage: 40000 IU (INTERNATIONAL UNIT)
     Route: 058
     Dates: start: 20130606

REACTIONS (1)
  - Cardiac arrest [Fatal]
